FAERS Safety Report 4647843-7 (Version None)
Quarter: 2005Q2

REPORT INFORMATION
  Report Type: 
  Country: None (occurrence: None)
  Receive Date: 20050428
  Receipt Date: 20050304
  Transmission Date: 20051028
  Serious: Yes (Other)
  Sender: FDA-Public Use
  Company Number: FR-GLAXOSMITHKLINE-B0374034A

PATIENT
  Age: 29 Year
  Sex: Female

DRUGS (2)
  1. ZINNAT [Suspect]
     Indication: PHARYNGOLARYNGEAL PAIN
     Dosage: 250MG TWICE PER DAY
     Route: 048
     Dates: start: 20050221, end: 20050227
  2. ACIDE TIAPROFENIQUE-TIAPROFENIC ACID-SURGAM [Concomitant]
     Indication: PHARYNGOLARYNGEAL PAIN
     Dosage: 200MG THREE TIMES PER DAY
     Route: 048
     Dates: start: 20050221

REACTIONS (3)
  - LEUKOCYTOCLASTIC VASCULITIS [None]
  - PURPURA [None]
  - RASH ERYTHEMATOUS [None]
